FAERS Safety Report 4986249-8 (Version None)
Quarter: 2006Q2

REPORT INFORMATION
  Report Type: 
  Country: None (occurrence: None)
  Receive Date: 20060428
  Receipt Date: 20060418
  Transmission Date: 20061013
  Serious: Yes (Other)
  Sender: FDA-Public Use
  Company Number: US-MERCK-0604USA03247

PATIENT
  Sex: Female

DRUGS (2)
  1. VIOXX [Suspect]
     Indication: PAIN
     Route: 065
  2. VIOXX [Suspect]
     Indication: INFLAMMATION
     Route: 065

REACTIONS (1)
  - MYOCARDIAL INFARCTION [None]
